FAERS Safety Report 25726347 (Version 1)
Quarter: 2025Q3

REPORT INFORMATION
  Report Type: Spontaneous
  Country: EU (occurrence: EU)
  Receive Date: 20250826
  Receipt Date: 20250826
  Transmission Date: 20251020
  Serious: Yes (Life-Threatening, Other)
  Sender: INTERCHEM
  Company Number: EU-HQ SPECIALTY-ES-2025INT000064

PATIENT
  Age: 55 Year
  Sex: Male

DRUGS (3)
  1. DEXMEDETOMIDINE HYDROCHLORIDE [Suspect]
     Active Substance: DEXMEDETOMIDINE HYDROCHLORIDE
     Indication: Sedation
     Dosage: 1.1 MG/KG, 1 HR
     Route: 065
     Dates: start: 20250703, end: 20250704
  2. PROPOFOL [Suspect]
     Active Substance: PROPOFOL
     Indication: Sedation
     Dosage: 1000 MG, 24 HR
     Route: 065
     Dates: start: 20250630, end: 20250708
  3. REMIFENTANIL [Suspect]
     Active Substance: REMIFENTANIL
     Indication: Sedation
     Dosage: 2 MG, 24 HR
     Route: 065
     Dates: start: 20250630, end: 20250708

REACTIONS (2)
  - Drug interaction [Unknown]
  - Cardiac arrest [Recovered/Resolved]

NARRATIVE: CASE EVENT DATE: 20250701
